FAERS Safety Report 19942255 (Version 1)
Quarter: 2021Q4

REPORT INFORMATION
  Report Type: Other
  Country: CN (occurrence: CN)
  Receive Date: 20211012
  Receipt Date: 20211012
  Transmission Date: 20220304
  Serious: Yes (Other)
  Sender: FDA-Public Use
  Company Number: CN-ROCHE-2931440

PATIENT

DRUGS (2)
  1. BEVACIZUMAB [Suspect]
     Active Substance: BEVACIZUMAB
     Indication: Cervix carcinoma
     Dosage: FOR 4 CYCLES.
     Route: 042
  2. VINORELBINE [Suspect]
     Active Substance: VINORELBINE TARTRATE
     Indication: Cervix carcinoma
     Dosage: ON DAYS 1 AND 8
     Route: 042

REACTIONS (8)
  - Renal impairment [Unknown]
  - Myelosuppression [Unknown]
  - Hepatic function abnormal [Unknown]
  - Thrombocytopenia [Unknown]
  - Hypertension [Unknown]
  - Gastrointestinal disorder [Unknown]
  - Disease progression [Unknown]
  - Off label use [Unknown]
